FAERS Safety Report 6666809-9 (Version None)
Quarter: 2010Q2

REPORT INFORMATION
  Report Type: 
  Country: None (occurrence: None)
  Receive Date: 20100401
  Receipt Date: 20100401
  Transmission Date: 20101027
  Serious: No
  Sender: FDA-Public Use
  Company Number: None

PATIENT
  Sex: Female
  Weight: 61.2356 kg

DRUGS (1)
  1. DEPO-PROVERA [Suspect]
     Indication: PREGNANCY
     Dosage: 150 MG Q12WKS IM
     Route: 030
     Dates: start: 20070907, end: 20090122

REACTIONS (1)
  - URINE HUMAN CHORIONIC GONADOTROPIN POSITIVE [None]
